FAERS Safety Report 13106824 (Version 3)
Quarter: 2017Q1

REPORT INFORMATION
  Report Type: Spontaneous
  Country: BR (occurrence: BR)
  Receive Date: 20170111
  Receipt Date: 20170215
  Transmission Date: 20170428
  Serious: Yes (Hospitalization, Other)
  Sender: FDA-Public Use
  Company Number: BR-BIOMARINAP-BR-2017-112369

PATIENT
  Sex: Male
  Weight: 23.4 kg

DRUGS (2)
  1. IBUPROFEN. [Concomitant]
     Active Substance: IBUPROFEN
     Indication: MUSCULOSKELETAL PAIN
  2. NAGLAZYME [Suspect]
     Active Substance: GALSULFASE
     Indication: MUCOPOLYSACCHARIDOSIS VI
     Dosage: 20 MG, QW
     Route: 042
     Dates: start: 20091119

REACTIONS (8)
  - Pain [Recovering/Resolving]
  - Spinal cord compression [Recovering/Resolving]
  - Loss of control of legs [Recovering/Resolving]
  - Quadriplegia [Recovering/Resolving]
  - Balance disorder [Recovering/Resolving]
  - Spinal operation [Recovering/Resolving]
  - Grip strength decreased [Recovering/Resolving]
  - Asthenia [Recovering/Resolving]
